FAERS Safety Report 4500227-4 (Version None)
Quarter: 2004Q4

REPORT INFORMATION
  Report Type: 
  Country: None (occurrence: None)
  Receive Date: 20041108
  Receipt Date: 20041026
  Transmission Date: 20050328
  Serious: Yes (Hospitalization, Other)
  Sender: FDA-Public Use
  Company Number: HQWYE131827OCT04

PATIENT
  Age: 12 Month
  Sex: Male
  Weight: 10 kg

DRUGS (1)
  1. REFACTO [Suspect]
     Indication: HAEMOPHILIA
     Dosage: 1000 IU ON DEMAND, INTRAVENOUS
     Route: 042
     Dates: start: 20041001, end: 20041001

REACTIONS (1)
  - THERAPY NON-RESPONDER [None]
